FAERS Safety Report 19003485 (Version 1)
Quarter: 2021Q1

REPORT INFORMATION
  Report Type: Spontaneous
  Country: US (occurrence: US)
  Receive Date: 20210312
  Receipt Date: 20210312
  Transmission Date: 20210420
  Serious: No
  Sender: FDA-Public Use
  Company Number: US-OCULAR THERAPEUTIX-2021OCX00005

PATIENT
  Age: 73 Year
  Sex: Female

DRUGS (1)
  1. DEXTENZA [Suspect]
     Active Substance: DEXAMETHASONE

REACTIONS (1)
  - Lacrimation increased [Not Recovered/Not Resolved]

NARRATIVE: CASE EVENT DATE: 20210110
